FAERS Safety Report 6101035-3 (Version None)
Quarter: 2009Q1

REPORT INFORMATION
  Report Type: 
  Country: None (occurrence: None)
  Receive Date: 20090304
  Receipt Date: 20090225
  Transmission Date: 20090719
  Serious: Yes (Other)
  Sender: FDA-Public Use
  Company Number: US-AMGEN-KDL335929

PATIENT
  Sex: Male

DRUGS (1)
  1. PROCRIT [Suspect]
     Indication: MYELODYSPLASTIC SYNDROME
     Route: 065
     Dates: start: 20081220, end: 20090117

REACTIONS (4)
  - CONSTIPATION [None]
  - HAEMOGLOBIN DECREASED [None]
  - IMMUNE SYSTEM DISORDER [None]
  - T-LYMPHOCYTE COUNT DECREASED [None]
